FAERS Safety Report 9278364 (Version 1)
Quarter: 2013Q2

REPORT INFORMATION
  Report Type: Spontaneous
  Country: US (occurrence: None)
  Receive Date: 20130506
  Receipt Date: 20130506
  Transmission Date: 20140414
  Serious: Yes (Other)
  Sender: FDA-Public Use
  Company Number: None

PATIENT
  Age: 13 Year
  Sex: Female
  Weight: 47.17 kg

DRUGS (1)
  1. AMOXICILLIN [Suspect]
     Indication: COUGH
     Route: 048
     Dates: start: 20130401, end: 20130411

REACTIONS (1)
  - Cough [None]
